FAERS Safety Report 12566791 (Version 1)
Quarter: 2016Q3

REPORT INFORMATION
  Report Type: Spontaneous
  Country: GB (occurrence: GB)
  Receive Date: 20160718
  Receipt Date: 20160718
  Transmission Date: 20161109
  Serious: Yes (Life-Threatening, Hospitalization, Disabling, Other)
  Sender: FDA-Public Use
  Company Number: GB-ELI_LILLY_AND_COMPANY-GB201607004428

PATIENT
  Age: 32 Year
  Sex: Male
  Weight: 92 kg

DRUGS (2)
  1. DULOXETINE HYDROCHLORIDE. [Suspect]
     Active Substance: DULOXETINE HYDROCHLORIDE
     Indication: BORDERLINE PERSONALITY DISORDER
     Dosage: 60 MG, UNKNOWN
     Route: 048
     Dates: start: 20160301, end: 20160601
  2. DIHYDROCODEINE BITARTRATE [Concomitant]
     Active Substance: DIHYDROCODEINE BITARTRATE
     Indication: FACIAL PAIN
     Dosage: UNK
     Dates: start: 20060101

REACTIONS (50)
  - Logorrhoea [Unknown]
  - Alcoholism [Recovering/Resolving]
  - General physical health deterioration [Unknown]
  - Faeces pale [Recovered/Resolved]
  - Nasal dryness [Recovered/Resolved]
  - Peripheral swelling [Recovered/Resolved]
  - Mental fatigue [Recovering/Resolving]
  - Loss of libido [Recovering/Resolving]
  - Urine odour abnormal [Recovered/Resolved]
  - Hypnagogic hallucination [Recovered/Resolved]
  - Abnormal dreams [Recovered/Resolved]
  - Fatigue [Recovered/Resolved]
  - Off label use [Unknown]
  - Hypomania [Recovered/Resolved]
  - Impulsive behaviour [Recovering/Resolving]
  - Dysphonia [Not Recovered/Not Resolved]
  - Gingival bleeding [Recovered/Resolved]
  - Micropenis [Recovered/Resolved]
  - Cough [Recovered/Resolved]
  - Pain in extremity [Recovered/Resolved]
  - Disturbance in attention [Recovered/Resolved]
  - Impatience [Recovering/Resolving]
  - Hyperhidrosis [Recovered/Resolved]
  - Mania [Recovered/Resolved]
  - Blood bilirubin increased [Recovering/Resolving]
  - Agitation [Recovering/Resolving]
  - Abdominal pain upper [Recovering/Resolving]
  - Suicidal ideation [Recovered/Resolved]
  - Chromaturia [Recovered/Resolved]
  - Vomiting [Recovered/Resolved]
  - Intention tremor [Recovered/Resolved]
  - Jaundice [Recovering/Resolving]
  - Alcohol intolerance [Unknown]
  - Parotid gland enlargement [Recovering/Resolving]
  - Crying [Recovered/Resolved]
  - Tremor [Recovered/Resolved]
  - Salivary hypersecretion [Recovered/Resolved]
  - Aphonia [Recovered/Resolved]
  - Personality change [Unknown]
  - Confusional state [Recovering/Resolving]
  - Headache [Recovered/Resolved]
  - Anxiety disorder [Recovering/Resolving]
  - Withdrawal syndrome [Unknown]
  - Epistaxis [Recovered/Resolved]
  - Affect lability [Recovered/Resolved]
  - Vomiting projectile [Recovered/Resolved]
  - Insomnia [Recovering/Resolving]
  - Aggression [Recovered/Resolved]
  - Dry mouth [Recovered/Resolved]
  - Paraesthesia [Recovered/Resolved]

NARRATIVE: CASE EVENT DATE: 20160307
